FAERS Safety Report 18871201 (Version 1)
Quarter: 2021Q1

REPORT INFORMATION
  Report Type: Report from Study
  Country: None (occurrence: US)
  Receive Date: 20210210
  Receipt Date: 20210210
  Transmission Date: 20210420
  Serious: Yes (Other)
  Sender: FDA-Public Use
  Company Number: US-ABBVIE-21K-163-3720654-00

PATIENT
  Sex: Female

DRUGS (1)
  1. HUMIRA [Suspect]
     Active Substance: ADALIMUMAB
     Indication: RHEUMATOID ARTHRITIS
     Dosage: CITRATE FREE
     Route: 058

REACTIONS (6)
  - Mammoplasty [Unknown]
  - Musculoskeletal discomfort [Unknown]
  - Device breakage [Unknown]
  - Rectal prolapse [Unknown]
  - Breast cancer female [Unknown]
  - Fear of disease [Unknown]

NARRATIVE: CASE EVENT DATE: 2008
